FAERS Safety Report 23884498 (Version 1)
Quarter: 2024Q2

REPORT INFORMATION
  Report Type: Spontaneous
  Country: KR (occurrence: US)
  Receive Date: 20240522
  Receipt Date: 20240522
  Transmission Date: 20240715
  Serious: No
  Sender: FDA-Public Use
  Company Number: KR-PFIZER INC-PV202400064637

PATIENT
  Sex: Female

DRUGS (1)
  1. SOMATROPIN [Suspect]
     Active Substance: SOMATROPIN
     Indication: Short stature
     Dosage: UNK
     Dates: start: 20230705

REACTIONS (2)
  - Injection site rash [Unknown]
  - Product administered at inappropriate site [Unknown]
